FAERS Safety Report 20409048 (Version 1)
Quarter: 2022Q1

REPORT INFORMATION
  Report Type: Other
  Country: US (occurrence: None)
  Receive Date: 20220201
  Receipt Date: 20220201
  Transmission Date: 20220423
  Serious: Yes (Death, Other)
  Sender: FDA-Public Use
  Company Number: US-ROCHE-2423347

PATIENT
  Age: 53 Year
  Sex: Female
  Weight: 103.51 kg

DRUGS (42)
  1. RITUXAN [Suspect]
     Active Substance: RITUXIMAB
     Indication: Systemic lupus erythematosus
     Dosage: ONGOING-NO?STRENGTH: 10MG/ML?EVERY 6 MONTHS??DATE OF LAST INFUSION: 28/FEB/2019
     Route: 042
     Dates: start: 20181119
  2. RITUXAN [Suspect]
     Active Substance: RITUXIMAB
     Indication: Interstitial lung disease
     Route: 042
     Dates: start: 201901
  3. RITUXAN [Suspect]
     Active Substance: RITUXIMAB
     Indication: Rheumatoid arthritis
     Dosage: TWICE IN ON MONTH EVERY 6 MONTHS?ONGOING STATUS: NO?STRENGTH: 10MG/ML
     Route: 042
  4. RITUXAN [Suspect]
     Active Substance: RITUXIMAB
     Indication: Fibromyalgia
     Dosage: TWICE IN ONE MONTH EVERY 6 MONTHS
     Route: 042
     Dates: start: 2019, end: 2021
  5. RITUXAN [Suspect]
     Active Substance: RITUXIMAB
     Indication: Osteoarthritis
     Dosage: NO
     Route: 042
     Dates: start: 20210603
  6. RITUXAN [Suspect]
     Active Substance: RITUXIMAB
     Indication: Interstitial lung disease
  7. RITUXAN [Suspect]
     Active Substance: RITUXIMAB
     Indication: Enthesopathy
  8. RITUXAN [Suspect]
     Active Substance: RITUXIMAB
     Indication: Enthesopathy
  9. PREDNISONE [Concomitant]
     Active Substance: PREDNISONE
     Route: 048
  10. PREDNISONE [Concomitant]
     Active Substance: PREDNISONE
     Route: 048
     Dates: start: 20210524
  11. METHOTREXATE [Concomitant]
     Active Substance: METHOTREXATE
  12. ALPRAZOLAM [Concomitant]
     Active Substance: ALPRAZOLAM
     Dosage: IF NEEDED
     Route: 048
  13. ANORO ELLIPTA [Concomitant]
     Active Substance: UMECLIDINIUM BROMIDE\VILANTEROL TRIFENATATE
     Dosage: INHALE 1 PUFF BY MOUTH AND INTO LUNGS ONCE DAILY
  14. ATORVASTATIN [Concomitant]
     Active Substance: ATORVASTATIN
     Route: 048
  15. BIOTIN [Concomitant]
     Active Substance: BIOTIN
     Dates: start: 20090602
  16. BUMETANIDE [Concomitant]
     Active Substance: BUMETANIDE
  17. CALCIUM [Concomitant]
     Active Substance: CALCIUM
     Route: 048
     Dates: start: 20090602
  18. CLOPIDOGREL [Concomitant]
     Active Substance: CLOPIDOGREL BISULFATE
     Route: 048
  19. DICLOFENAC [Concomitant]
     Active Substance: DICLOFENAC
     Route: 061
  20. DICLOFENAC [Concomitant]
     Active Substance: DICLOFENAC
     Dosage: APPLY TO FEET
     Route: 061
  21. CICLOPIROX [Concomitant]
     Active Substance: CICLOPIROX
     Route: 061
  22. FUROSEMIDE [Concomitant]
     Active Substance: FUROSEMIDE
     Route: 048
  23. GABAPENTIN [Concomitant]
     Active Substance: GABAPENTIN
     Route: 048
  24. HYDROMORPHONE [Concomitant]
     Active Substance: HYDROMORPHONE
     Dosage: IF NEEDED FOR PAIN
     Route: 048
  25. FERROUS SULFATE [Concomitant]
     Active Substance: FERROUS SULFATE
     Dosage: AS NEEDED
     Route: 048
  26. LANTUS SOLOSTAR [Concomitant]
     Active Substance: INSULIN GLARGINE
     Route: 058
  27. LEVALBUTEROL [Concomitant]
     Active Substance: LEVALBUTEROL
     Dosage: INHALE 2 PUFFS IF NEEDED
  28. METHOCARBAMOL [Concomitant]
     Active Substance: METHOCARBAMOL
     Dosage: IF NEEDED FOR MUSCLE PAIN
     Route: 048
  29. MORPHINE [Concomitant]
     Active Substance: MORPHINE
     Route: 048
  30. NARCAN [Concomitant]
     Active Substance: NALOXONE HYDROCHLORIDE
     Route: 045
  31. NITROGLYCERIN [Concomitant]
     Active Substance: NITROGLYCERIN
  32. NOVOLOG [Concomitant]
     Active Substance: INSULIN ASPART
     Dosage: INJECT 8 UNITS AS PER SLIDING SCALE
     Route: 058
  33. NYSTATIN [Concomitant]
     Active Substance: NYSTATIN
     Dosage: 100000 UNIT/GRAM
     Route: 061
  34. ONDANSETRON HCL [Concomitant]
     Active Substance: ONDANSETRON HYDROCHLORIDE
     Dosage: IF NEEDED FOR NAUSEA AND VOMITTING
     Route: 048
  35. PANTOPRAZOLE [Concomitant]
     Active Substance: PANTOPRAZOLE
     Route: 048
  36. POLYETHYLENE GLYCOL [Concomitant]
     Active Substance: POLYETHYLENE GLYCOL
     Dosage: 17GRAM/DOSE
     Route: 048
  37. POTASSIUM CHLORIDE [Concomitant]
     Active Substance: POTASSIUM CHLORIDE
     Route: 048
  38. PREDNISONE [Concomitant]
     Active Substance: PREDNISONE
     Route: 048
  39. PROLIA [Concomitant]
     Active Substance: DENOSUMAB
     Dosage: INJECT FOR 180 DAYS
     Route: 058
     Dates: start: 20170908
  40. TRIAMCINOLONE ACETONIDE [Concomitant]
     Active Substance: TRIAMCINOLONE ACETONIDE
     Dosage: APPLY ON AFFECTED AREA
     Route: 061
  41. VITAMIN D2 [Concomitant]
     Active Substance: ERGOCALCIFEROL
     Route: 048
  42. XARELTO [Concomitant]
     Active Substance: RIVAROXABAN
     Dosage: EVERY MORNING
     Route: 048

REACTIONS (17)
  - Compression fracture [Not Recovered/Not Resolved]
  - Off label use [Unknown]
  - Malaise [Not Recovered/Not Resolved]
  - Vitamin D deficiency [Unknown]
  - Hyperkalaemia [Unknown]
  - Anaemia [Unknown]
  - Hyperlipidaemia [Unknown]
  - Upper respiratory tract infection [Unknown]
  - Bronchitis [Unknown]
  - Furuncle [Unknown]
  - Intervertebral disc degeneration [Unknown]
  - Epicondylitis [Unknown]
  - Enthesopathy [Unknown]
  - Plantar fascial fibromatosis [Unknown]
  - Urine analysis abnormal [Unknown]
  - Rib fracture [Unknown]
  - Death [Fatal]

NARRATIVE: CASE EVENT DATE: 20190101
